FAERS Safety Report 4997910-3 (Version None)
Quarter: 2006Q2

REPORT INFORMATION
  Report Type: 
  Country: None (occurrence: None)
  Receive Date: 20060510
  Receipt Date: 20060428
  Transmission Date: 20061013
  Serious: Yes (Death, Hospitalization)
  Sender: FDA-Public Use
  Company Number: JP-BRISTOL-MYERS SQUIBB COMPANY-13370234

PATIENT
  Age: 2 Month
  Sex: Male

DRUGS (16)
  1. ENDOXAN [Suspect]
     Indication: BONE MARROW CONDITIONING REGIMEN
     Route: 041
     Dates: start: 20050205, end: 20050208
  2. MABLIN [Suspect]
     Indication: BONE MARROW CONDITIONING REGIMEN
     Route: 048
     Dates: start: 20050131, end: 20050203
  3. FLUDARA [Suspect]
     Indication: BONE MARROW CONDITIONING REGIMEN
     Route: 041
     Dates: start: 20050131, end: 20050203
  4. URSODEOXYCHOLIC ACID [Concomitant]
     Dates: start: 20050207, end: 20050217
  5. SALOBEL [Concomitant]
     Dates: start: 20050129, end: 20050130
  6. RIVOTRIL [Concomitant]
     Dates: start: 20050130, end: 20050205
  7. PROGRAF [Concomitant]
     Dates: start: 19950209, end: 20050307
  8. METHOTREXATE [Concomitant]
     Dates: start: 20050211, end: 20050216
  9. NEU-UP [Concomitant]
     Dates: start: 20050211, end: 20050317
  10. ZOVIRAX [Concomitant]
     Dates: start: 20050211, end: 20050317
  11. FIRSTCIN [Concomitant]
     Dates: start: 20050212, end: 20050228
  12. AMIKACIN SULFATE [Concomitant]
     Dates: start: 20050212, end: 20050221
  13. CARBENIN [Concomitant]
     Dates: start: 20050223, end: 20050307
  14. CARBENIN [Concomitant]
     Dates: start: 20050314, end: 20050317
  15. NEUART [Concomitant]
     Dates: start: 20050224, end: 20050309
  16. PROGRAF [Concomitant]

REACTIONS (4)
  - GRAFT VERSUS HOST DISEASE [None]
  - PULMONARY HAEMORRHAGE [None]
  - RENAL FAILURE [None]
  - VENOOCCLUSIVE LIVER DISEASE [None]
